FAERS Safety Report 18591149 (Version 1)
Quarter: 2020Q4

REPORT INFORMATION
  Report Type: Spontaneous
  Country: GB (occurrence: GB)
  Receive Date: 20201208
  Receipt Date: 20201208
  Transmission Date: 20210114
  Serious: Yes (Other)
  Sender: FDA-Public Use
  Company Number: GB-PFIZER INC-2020477880

PATIENT
  Age: 63 Year
  Sex: Female

DRUGS (6)
  1. OXYBUTYNIN. [Concomitant]
     Active Substance: OXYBUTYNIN CHLORIDE
     Dosage: UNK
     Route: 065
  2. PREGABALIN. [Concomitant]
     Active Substance: PREGABALIN
     Dosage: 150 MG, DAILY (75 MG, BID)
     Route: 065
  3. AMLODIPINE BESILATE [Suspect]
     Active Substance: AMLODIPINE BESYLATE
     Indication: REYNOLD^S SYNDROME
     Dosage: UNK
     Route: 065
     Dates: start: 20200928
  4. OMEPRAZOLE. [Concomitant]
     Active Substance: OMEPRAZOLE
     Dosage: UNK
     Route: 065
  5. RIMADYL [Concomitant]
     Active Substance: CARPROFEN
     Indication: PAIN
     Dosage: 40 MG, 1X/DAY
     Route: 065
  6. RAMIPRIL. [Concomitant]
     Active Substance: RAMIPRIL
     Dosage: UNK
     Route: 065

REACTIONS (5)
  - Cataract [Unknown]
  - Condition aggravated [Unknown]
  - Shock [Unknown]
  - Blindness [Unknown]
  - Depression [Unknown]
